FAERS Safety Report 7639709-5 (Version None)
Quarter: 2011Q3

REPORT INFORMATION
  Report Type: 
  Country: None (occurrence: None)
  Receive Date: 20110727
  Receipt Date: 20110721
  Transmission Date: 20111222
  Serious: Yes (Other)
  Sender: FDA-Public Use
  Company Number: JP-PFIZER INC-2011166091

PATIENT
  Age: 86 Year
  Sex: Male

DRUGS (3)
  1. ETHAMBUTOL HYDROCHLORIDE [Suspect]
  2. RIFAMPICIN [Suspect]
  3. ISONIAZID [Concomitant]

REACTIONS (1)
  - PNEUMONITIS [None]
